FAERS Safety Report 4578689-6 (Version None)
Quarter: 2005Q1

REPORT INFORMATION
  Report Type: 
  Country: None (occurrence: None)
  Receive Date: 20050211
  Receipt Date: 20041208
  Transmission Date: 20050727
  Serious: Yes (Hospitalization)
  Sender: FDA-Public Use
  Company Number: JP-ROCHE-388491

PATIENT
  Age: 72 Year
  Sex: Female

DRUGS (13)
  1. DENOSINE IV [Suspect]
     Indication: CYTOMEGALOVIRUS INFECTION
     Route: 041
     Dates: start: 20041119, end: 20041130
  2. TOBRACIN [Suspect]
     Indication: INFECTION
     Route: 042
     Dates: start: 20041115, end: 20041116
  3. TOBRACIN [Suspect]
     Route: 042
     Dates: start: 20041117, end: 20041202
  4. BAKTAR [Concomitant]
     Route: 048
     Dates: start: 20041025
  5. MODACIN [Concomitant]
     Indication: PNEUMONIA
     Route: 042
     Dates: start: 20041105
  6. STEROID NOS [Concomitant]
     Dates: start: 20041020
  7. IMMUNOSUPPRESSANT [Concomitant]
     Dates: start: 20041020, end: 20041023
  8. PLATELETS [Concomitant]
     Route: 042
     Dates: start: 20041122, end: 20041122
  9. BLOOD, PACKED RED CELLS [Concomitant]
     Route: 042
     Dates: start: 20041122, end: 20041122
  10. LOCAL ANAESTHETICS [Concomitant]
     Dates: start: 20041122, end: 20041122
  11. ALKYLATING AGENTS [Concomitant]
  12. UNKNOWN DRUG [Concomitant]
     Dosage: DRUG REPORTED AS ADRENAL HORMONE PREPARATION.
  13. PREDNISOLONE SODIUM SUCCINATE INJ [Concomitant]
     Indication: STEROID THERAPY
     Dosage: DOSE ON 23/10/2004 = 60 MG /DAILY, REDUCED 50 MG/DAILY 10/11/2004, REDUCED TO 40 MG/DAILY ON 15/11/+
     Dates: start: 20041023, end: 20041129

REACTIONS (2)
  - COMA [None]
  - DRUG LEVEL INCREASED [None]
